FAERS Safety Report 5214380-0 (Version None)
Quarter: 2007Q1

REPORT INFORMATION
  Report Type: 
  Country: None (occurrence: None)
  Receive Date: 20070122
  Receipt Date: 20070112
  Transmission Date: 20070707
  Serious: Yes (Hospitalization)
  Sender: FDA-Public Use
  Company Number: FR-GLAXOSMITHKLINE-B0454519A

PATIENT
  Age: 78 Year
  Sex: Male

DRUGS (8)
  1. ARIXTRA [Suspect]
     Indication: PHLEBITIS SUPERFICIAL
     Dosage: 7.5MG PER DAY
     Route: 058
     Dates: start: 20060914, end: 20060921
  2. APROVEL [Concomitant]
     Indication: ESSENTIAL HYPERTENSION
     Dosage: 75MG PER DAY
     Route: 048
     Dates: end: 20060921
  3. LERCAN [Concomitant]
     Indication: ESSENTIAL HYPERTENSION
     Dosage: 10MG PER DAY
     Route: 048
     Dates: end: 20060921
  4. PLAVIX [Concomitant]
     Indication: PROPHYLAXIS
     Dosage: 1UNIT PER DAY
     Route: 048
     Dates: end: 20060914
  5. FONZYLANE [Concomitant]
     Indication: ARTERITIS
     Dosage: 600MG PER DAY
     Route: 048
  6. INSULATARD NPH HUMAN [Concomitant]
     Dosage: 50IU3 PER DAY
     Route: 058
  7. MYOLASTAN [Concomitant]
  8. ZAMUDOL [Concomitant]
     Dosage: 400MG PER DAY
     Route: 048
     Dates: end: 20060921

REACTIONS (3)
  - ANGINA PECTORIS [None]
  - HAEMOGLOBIN DECREASED [None]
  - RECTAL HAEMORRHAGE [None]
